FAERS Safety Report 25666464 (Version 1)
Quarter: 2025Q3

REPORT INFORMATION
  Report Type: Spontaneous
  Country: US (occurrence: US)
  Receive Date: 20250811
  Receipt Date: 20250811
  Transmission Date: 20251020
  Serious: No
  Sender: SANOFI AVENTIS
  Company Number: US-SA-2025SA227928

PATIENT
  Sex: Female

DRUGS (3)
  1. DUPIXENT [Suspect]
     Active Substance: DUPILUMAB
     Indication: Dermatitis atopic
     Dosage: 300 MG, QOW
     Route: 058
     Dates: start: 202203
  2. MORPHINE [Suspect]
     Active Substance: MORPHINE
  3. TRAMADOL [Suspect]
     Active Substance: TRAMADOL

REACTIONS (2)
  - Drug hypersensitivity [Unknown]
  - Gallbladder operation [Unknown]
